FAERS Safety Report 7710952-X (Version None)
Quarter: 2011Q3

REPORT INFORMATION
  Report Type: 
  Country: None (occurrence: None)
  Receive Date: 20110825
  Receipt Date: 20110816
  Transmission Date: 20111222
  Serious: Yes (Hospitalization)
  Sender: FDA-Public Use
  Company Number: US-MERCK-1108USA01984

PATIENT
  Age: 52 Year
  Sex: Male

DRUGS (8)
  1. GLIPIZIDE [Concomitant]
     Route: 065
  2. METFORMIN HYDROCHLORIDE [Suspect]
     Route: 065
  3. METOPROLOL [Concomitant]
     Route: 065
  4. JANUMET [Suspect]
     Indication: TYPE 2 DIABETES MELLITUS
     Route: 048
  5. LIPITOR [Concomitant]
     Route: 065
  6. DIGOXIN [Concomitant]
     Route: 065
  7. DILTIAZEM HYDROCHLORIDE [Concomitant]
     Route: 065
  8. ISOSORBIDE MONONITRATE [Concomitant]
     Route: 065

REACTIONS (4)
  - PNEUMONIA [None]
  - CHEST PAIN [None]
  - RESPIRATORY DISORDER [None]
  - BLOOD GLUCOSE INCREASED [None]
